FAERS Safety Report 19837512 (Version 1)
Quarter: 2021Q3

REPORT INFORMATION
  Report Type: Report from Study
  Country: CA (occurrence: CA)
  Receive Date: 20210914
  Receipt Date: 20210914
  Transmission Date: 20211014
  Serious: Yes (Hospitalization, Other)
  Sender: FDA-Public Use
  Company Number: CA-BRISTOL-MYERS SQUIBB COMPANY-BMS-2021-090907

PATIENT
  Age: 88 Year
  Sex: Male

DRUGS (1)
  1. ABATACEPT [Suspect]
     Active Substance: ABATACEPT
     Indication: RHEUMATOID ARTHRITIS
     Dosage: 125 MILLIGRAM, QWK
     Route: 058
     Dates: start: 20200115

REACTIONS (4)
  - Wound [Recovering/Resolving]
  - Urinary retention [Unknown]
  - Urinary tract infection [Recovering/Resolving]
  - Mouth ulceration [Recovering/Resolving]

NARRATIVE: CASE EVENT DATE: 20210828
